FAERS Safety Report 12658925 (Version 3)
Quarter: 2016Q3

REPORT INFORMATION
  Report Type: Spontaneous
  Country: CA (occurrence: CA)
  Receive Date: 20160817
  Receipt Date: 20160919
  Transmission Date: 20161109
  Serious: Yes (Death, Hospitalization)
  Sender: FDA-Public Use
  Company Number: CA-BRACCO-001111

PATIENT
  Age: 76 Year
  Sex: Female

DRUGS (1)
  1. ISOVUE 370 [Suspect]
     Active Substance: IOPAMIDOL
     Indication: COMPUTERISED TOMOGRAM
     Route: 042
     Dates: start: 20160515, end: 20160515

REACTIONS (3)
  - Circulatory collapse [Fatal]
  - Asthenia [Unknown]
  - Rhabdomyolysis [Fatal]

NARRATIVE: CASE EVENT DATE: 20160516
